FAERS Safety Report 6463549-6 (Version None)
Quarter: 2009Q4

REPORT INFORMATION
  Report Type: 
  Country: None (occurrence: None)
  Receive Date: 20091123
  Receipt Date: 20091104
  Transmission Date: 20100525
  Serious: Yes (Hospitalization)
  Sender: FDA-Public Use
  Company Number: 1-20643231

PATIENT
  Age: 48 Year
  Sex: Female

DRUGS (2)
  1. LAMOTRIGINE [Suspect]
     Indication: EPILEPSY
     Dosage: 50 MG ONCE DAILY, ORAL
     Route: 048
  2. CARBAMAZEPINE [Concomitant]

REACTIONS (10)
  - ALANINE AMINOTRANSFERASE INCREASED [None]
  - BLOOD SODIUM DECREASED [None]
  - DRUG HYPERSENSITIVITY [None]
  - FACE OEDEMA [None]
  - HYPOTENSION [None]
  - NEUTROPHILIA [None]
  - OEDEMA PERIPHERAL [None]
  - PHOTOPHOBIA [None]
  - PLATELET COUNT DECREASED [None]
  - TACHYCARDIA [None]
